FAERS Safety Report 10874214 (Version 6)
Quarter: 2015Q2

REPORT INFORMATION
  Report Type: Spontaneous
  Country: JP (occurrence: JP)
  Receive Date: 20150225
  Receipt Date: 20150421
  Transmission Date: 20150821
  Serious: Yes (Death, Hospitalization)
  Sender: FDA-Public Use
  Company Number: JP-SA-2015SA022387

PATIENT
  Age: 80 Year
  Sex: Female

DRUGS (16)
  1. BLOPRESS [Concomitant]
     Active Substance: CANDESARTAN CILEXETIL
  2. FEBURIC [Concomitant]
     Active Substance: FEBUXOSTAT
  3. AMARYL [Suspect]
     Active Substance: GLIMEPIRIDE
     Indication: TYPE 2 DIABETES MELLITUS
     Route: 048
  4. PURSENNID [Concomitant]
     Active Substance: SENNOSIDES A AND B
  5. DEPAS [Concomitant]
     Active Substance: ETIZOLAM
  6. BAYASPIRIN [Concomitant]
     Active Substance: ASPIRIN
  7. XYZAL [Concomitant]
     Active Substance: LEVOCETIRIZINE DIHYDROCHLORIDE
  8. MAINTATE [Concomitant]
     Active Substance: BISOPROLOL FUMARATE
  9. JANUVIA [Suspect]
     Active Substance: SITAGLIPTIN PHOSPHATE
     Indication: TYPE 2 DIABETES MELLITUS
     Route: 048
  10. LIPITOR [Concomitant]
     Active Substance: ATORVASTATIN CALCIUM
  11. TAKEPRON [Concomitant]
     Active Substance: LANSOPRAZOLE
     Route: 048
  12. URSO [Concomitant]
     Active Substance: URSODIOL
  13. LASIX [Concomitant]
     Active Substance: FUROSEMIDE
  14. CRAVIT [Suspect]
     Active Substance: LEVOFLOXACIN
     Indication: URINARY TRACT INFECTION
     Route: 048
     Dates: start: 20131123
  15. LENDORMIN [Concomitant]
     Active Substance: BROTIZOLAM
  16. SELARA [Concomitant]
     Active Substance: EPLERENONE

REACTIONS (5)
  - Altered state of consciousness [Fatal]
  - Gliosis [Fatal]
  - Hypoglycaemic encephalopathy [Fatal]
  - Blood glucose decreased [Fatal]
  - Fall [Unknown]

NARRATIVE: CASE EVENT DATE: 20131129
